FAERS Safety Report 4864193-4 (Version None)
Quarter: 2005Q4

REPORT INFORMATION
  Report Type: 
  Country: None (occurrence: None)
  Receive Date: 20051222
  Receipt Date: 20051209
  Transmission Date: 20060501
  Serious: Yes (Other)
  Sender: FDA-Public Use
  Company Number: PHRM2005FR03281

PATIENT
  Age: 51 Year
  Sex: Male

DRUGS (1)
  1. COTAREG [Suspect]
     Indication: HYPERTENSION
     Route: 048
     Dates: start: 20011127

REACTIONS (1)
  - PSORIASIS [None]
